FAERS Safety Report 9612592 (Version 2)
Quarter: 2013Q4

REPORT INFORMATION
  Report Type: Spontaneous
  Country: US (occurrence: US)
  Receive Date: 20131010
  Receipt Date: 20131106
  Transmission Date: 20140711
  Serious: Yes (Other)
  Sender: FDA-Public Use
  Company Number: US-PFIZER INC-2013286734

PATIENT
  Age: 58 Year
  Sex: Female
  Weight: 75.74 kg

DRUGS (4)
  1. ACCUPRIL [Suspect]
     Indication: HYPERTENSION
     Dosage: 20 MG, UNK
     Dates: start: 2000
  2. XANAX [Concomitant]
     Indication: ANXIETY
     Dosage: UNK
  3. DIAZEPAM [Concomitant]
     Indication: ANXIETY
     Dosage: UNK
  4. TOPROL XL [Concomitant]
     Indication: HYPERTENSION
     Dosage: 25 MG, UNK

REACTIONS (1)
  - Diabetes mellitus [Unknown]
